FAERS Safety Report 10757336 (Version 1)
Quarter: 2015Q1

REPORT INFORMATION
  Report Type: Spontaneous
  Country: US (occurrence: None)
  Receive Date: 20150130
  Receipt Date: 20150130
  Transmission Date: 20150721
  Serious: No
  Sender: FDA-Public Use
  Company Number: 2015-00013

PATIENT
  Age: 28 Year
  Sex: Female
  Weight: 50.8 kg

DRUGS (1)
  1. ZICAM EXTREME CONGESTION RELIEF [Suspect]
     Active Substance: OXYMETAZOLINE HYDROCHLORIDE
     Indication: NASOPHARYNGITIS
     Route: 045
     Dates: start: 20150127

REACTIONS (1)
  - Anosmia [None]

NARRATIVE: CASE EVENT DATE: 20150127
